FAERS Safety Report 8224329-4 (Version None)
Quarter: 2012Q1

REPORT INFORMATION
  Report Type: 
  Country: None (occurrence: None)
  Receive Date: 20120321
  Receipt Date: 20120313
  Transmission Date: 20120608
  Serious: Yes (Other)
  Sender: FDA-Public Use
  Company Number: US-JNJFOC-20120307787

PATIENT
  Sex: Male
  Weight: 90.72 kg

DRUGS (10)
  1. DURAGESIC-100 [Suspect]
     Indication: BACK INJURY
     Route: 062
  2. PROVENTIL [Concomitant]
     Indication: ASTHMA
     Dosage: 3-4 TIMES A DAY
     Route: 055
  3. PREDNISONE [Concomitant]
     Indication: ASTHMA
     Dosage: 3-4 TIMES A DAY
     Route: 048
  4. DURAGESIC-100 [Suspect]
     Indication: BACK DISORDER
     Route: 062
  5. ARICEPT [Suspect]
     Indication: MEMORY IMPAIRMENT
     Route: 048
     Dates: start: 20110101
  6. FOLIC ACID [Concomitant]
     Indication: PRODUCT USED FOR UNKNOWN INDICATION
     Route: 048
  7. ADVAIR DISKUS 100/50 [Concomitant]
     Indication: ASTHMA
     Dosage: 45-21MG/2 PUFFS TWICE A DAY
     Route: 055
  8. CITALOPRAM HYDROBROMIDE [Suspect]
     Indication: MEMORY IMPAIRMENT
     Route: 048
     Dates: start: 20110101
  9. LYRICA [Suspect]
     Indication: PRODUCT USED FOR UNKNOWN INDICATION
     Route: 048
     Dates: end: 20120301
  10. ATROVENT [Concomitant]
     Indication: ASTHMA
     Dosage: 3-4 TIMES A DAY
     Route: 055

REACTIONS (8)
  - CONTUSION [None]
  - MUSCULAR WEAKNESS [None]
  - SWELLING [None]
  - ABNORMAL LOSS OF WEIGHT [None]
  - WEIGHT INCREASED [None]
  - HYPOTHYROIDISM [None]
  - ADVERSE EVENT [None]
  - DYSURIA [None]
